FAERS Safety Report 23203161 (Version 1)
Quarter: 2023Q4

REPORT INFORMATION
  Report Type: Spontaneous
  Country: None (occurrence: US)
  Receive Date: 20231120
  Receipt Date: 20231120
  Transmission Date: 20240110
  Serious: No
  Sender: FDA-Public Use
  Company Number: US-Marksans Pharma Limited-2148453

PATIENT
  Age: 26 Year
  Sex: Female
  Weight: 70.455 kg

DRUGS (3)
  1. CETIRIZINE [Suspect]
     Active Substance: CETIRIZINE HYDROCHLORIDE
     Route: 048
  2. PROBIOTICS NOS [Concomitant]
     Active Substance: PROBIOTICS NOS
  3. SPIRONOLACTONE [Concomitant]
     Active Substance: SPIRONOLACTONE

REACTIONS (3)
  - Dizziness [None]
  - Dizziness [None]
  - Lethargy [None]
